FAERS Safety Report 6562560-4 (Version None)
Quarter: 2010Q1

REPORT INFORMATION
  Report Type: 
  Country: None (occurrence: None)
  Receive Date: 20100130
  Receipt Date: 20091111
  Transmission Date: 20100710
  Serious: No
  Sender: FDA-Public Use
  Company Number: US-ABBOTT-09P-163-0608724-00

PATIENT
  Sex: Female
  Weight: 59.02 kg

DRUGS (4)
  1. HUMIRA [Suspect]
     Indication: CROHN'S DISEASE
     Dosage: 160MG
     Route: 058
     Dates: start: 20091015
  2. SEROQUEL [Concomitant]
     Indication: DRUG USE FOR UNKNOWN INDICATION
     Route: 048
  3. VITAMINS [Concomitant]
     Indication: VITAMIN SUPPLEMENTATION
  4. ESTROGEN PATCH [Concomitant]
     Indication: OESTROGEN REPLACEMENT THERAPY
     Route: 062

REACTIONS (1)
  - INJECTION SITE ERYTHEMA [None]
